FAERS Safety Report 4869354-6 (Version None)
Quarter: 2005Q4

REPORT INFORMATION
  Report Type: 
  Country: None (occurrence: None)
  Receive Date: 20051230
  Receipt Date: 20051222
  Transmission Date: 20060501
  Serious: Yes (Other)
  Sender: FDA-Public Use
  Company Number: 2005PK02552

PATIENT
  Age: 20820 Day
  Sex: Female
  Weight: 64 kg

DRUGS (7)
  1. NEXIUM [Suspect]
     Indication: PROPHYLAXIS
     Route: 048
     Dates: start: 20050501
  2. UMCKALOABO [Interacting]
     Indication: NASOPHARYNGITIS
     Dates: start: 20051025, end: 20051104
  3. THYRONAJOD [Concomitant]
     Indication: GOITRE
     Dates: start: 20041001
  4. SINUPRET [Concomitant]
     Indication: NASOPHARYNGITIS
     Dates: start: 20051028, end: 20051104
  5. PHYTOESTROL N [Concomitant]
     Indication: MENOPAUSAL SYMPTOMS
     Dates: start: 20051001, end: 20051108
  6. AHP 200 [Concomitant]
     Indication: OSTEOARTHRITIS
     Dates: start: 20050301
  7. GLUCOSAMINE CHONDROITIN MSM [Concomitant]
     Dates: start: 20050401

REACTIONS (2)
  - DRUG INTERACTION [None]
  - ERYTHEMA MULTIFORME [None]
